FAERS Safety Report 21345624 (Version 1)
Quarter: 2022Q3

REPORT INFORMATION
  Report Type: Spontaneous
  Country: AU (occurrence: AU)
  Receive Date: 20220916
  Receipt Date: 20220916
  Transmission Date: 20221026
  Serious: Yes (Other)
  Sender: FDA-Public Use
  Company Number: AU-FERRINGPH-2022FE04693

PATIENT

DRUGS (1)
  1. FIRMAGON [Suspect]
     Active Substance: DEGARELIX ACETATE
     Indication: Product used for unknown indication
     Dosage: INITIAL LOADING DOSE
     Route: 065

REACTIONS (3)
  - Hernia [Unknown]
  - Swelling [Unknown]
  - Injection site mass [Unknown]
